FAERS Safety Report 17542418 (Version 1)
Quarter: 2020Q1

REPORT INFORMATION
  Report Type: Spontaneous
  Country: US (occurrence: US)
  Receive Date: 20200314
  Receipt Date: 20200314
  Transmission Date: 20200409
  Serious: Yes (Life-Threatening, Hospitalization, Other)
  Sender: FDA-Public Use
  Company Number: US-UNITED THERAPEUTICS-UNT-2020-004113

PATIENT
  Age: 50 Year
  Sex: Female

DRUGS (1)
  1. REMODULIN [Suspect]
     Active Substance: TREPROSTINIL
     Indication: PULMONARY ARTERIAL HYPERTENSION
     Dosage: UNK, CONTINUING
     Route: 041

REACTIONS (5)
  - Device physical property issue [Unknown]
  - Acute right ventricular failure [Unknown]
  - Syncope [Unknown]
  - Cardiac arrest [Unknown]
  - Haemodynamic instability [Unknown]
